FAERS Safety Report 15315487 (Version 4)
Quarter: 2018Q4

REPORT INFORMATION
  Report Type: Report from Study
  Country: US (occurrence: US)
  Receive Date: 20180824
  Receipt Date: 20181003
  Transmission Date: 20190204
  Serious: Yes (Hospitalization)
  Sender: FDA-Public Use
  Company Number: US-JNJFOC-20180832799

PATIENT
  Age: 79 Year
  Sex: Male

DRUGS (16)
  1. ZINC. [Concomitant]
     Active Substance: ZINC
  2. ASCORBIC ACID. [Concomitant]
     Active Substance: ASCORBIC ACID
  3. VITAMIN B6 [Concomitant]
     Active Substance: PYRIDOXINE HYDROCHLORIDE
  4. ALLOPURINOL. [Concomitant]
     Active Substance: ALLOPURINOL
  5. ASPIRIN. [Concomitant]
     Active Substance: ASPIRIN
  6. ASTAXANTHIN [Concomitant]
  7. CHLORELLA VULGARIS [Concomitant]
     Active Substance: CHLORELLA VULGARIS
  8. KRILL OIL [Concomitant]
     Active Substance: DIETARY SUPPLEMENT
  9. FLUTICASONE. [Concomitant]
     Active Substance: FLUTICASONE
  10. METOPROLOL TARTRATE. [Concomitant]
     Active Substance: METOPROLOL TARTRATE
  11. IMBRUVICA [Suspect]
     Active Substance: IBRUTINIB
     Indication: B-CELL SMALL LYMPHOCYTIC LYMPHOMA
     Route: 048
     Dates: start: 20180406, end: 2018
  12. CALCIUM W/MAGNESIUM/ZINC [Concomitant]
  13. LUTEIN [Concomitant]
     Active Substance: LUTEIN
  14. IRON [Concomitant]
     Active Substance: IRON
  15. ELIQUIS [Concomitant]
     Active Substance: APIXABAN
  16. FOLIC ACID. [Concomitant]
     Active Substance: FOLIC ACID

REACTIONS (3)
  - Cardiac failure congestive [Unknown]
  - Atrial fibrillation [Unknown]
  - Diarrhoea [Unknown]

NARRATIVE: CASE EVENT DATE: 20180816
